FAERS Safety Report 6926686-5 (Version None)
Quarter: 2010Q3

REPORT INFORMATION
  Report Type: 
  Country: None (occurrence: None)
  Receive Date: 20100816
  Receipt Date: 20100625
  Transmission Date: 20110219
  Serious: No
  Sender: FDA-Public Use
  Company Number: US-ABBOTT-10P-163-0654198-00

PATIENT
  Sex: Male
  Weight: 85.352 kg

DRUGS (3)
  1. SIMCOR [Suspect]
     Indication: BLOOD CHOLESTEROL INCREASED
     Dosage: 500/20 MG DAILY
     Dates: start: 20100301, end: 20100601
  2. SIMCOR [Suspect]
     Dosage: 2-500/20 MG TABS DAILY
     Dates: start: 20100601
  3. ASPIRIN [Concomitant]
     Indication: PRODUCT USED FOR UNKNOWN INDICATION

REACTIONS (1)
  - LOW DENSITY LIPOPROTEIN INCREASED [None]
